FAERS Safety Report 24940522 (Version 2)
Quarter: 2025Q3

REPORT INFORMATION
  Report Type: Spontaneous
  Country: EU (occurrence: EU)
  Receive Date: 20250207
  Receipt Date: 20250803
  Transmission Date: 20251020
  Serious: Yes (Other)
  Sender: ALEXION PHARMACEUTICALS
  Company Number: None

PATIENT
  Age: 58 Year
  Sex: Female
  Weight: 77 kg

DRUGS (5)
  1. ESOMEPRAZOLE [Suspect]
     Active Substance: ESOMEPRAZOLE
     Indication: Helicobacter gastritis
     Dates: start: 20241211, end: 20250104
  2. METRONIDAZOLE [Suspect]
     Active Substance: METRONIDAZOLE
     Dosage: 1 PIECE 3 TIMES A DAY, FOR 7 DAYS
     Dates: start: 20241211
  3. LEVOTHYROXINE [Concomitant]
     Active Substance: LEVOTHYROXINE
     Indication: Product used for unknown indication
     Route: 065
  4. AMOXICILLIN [Suspect]
     Active Substance: AMOXICILLIN
     Dosage: 1 PIECE TWICE A DAY, TOGETHER WITH METRONIDAZOLE
     Dates: start: 20241211
  5. LEVOTHYROXINE [Concomitant]
     Active Substance: LEVOTHYROXINE
     Indication: Product used for unknown indication
     Dosage: THYROID MEDICATION 100MG PER DAY
     Route: 065

REACTIONS (4)
  - Depersonalisation/derealisation disorder [Not Recovered/Not Resolved]
  - Balance disorder [Recovering/Resolving]
  - Somnolence [Not Recovered/Not Resolved]
  - Dizziness [Recovering/Resolving]
